FAERS Safety Report 15518084 (Version 1)
Quarter: 2018Q4

REPORT INFORMATION
  Report Type: Spontaneous
  Country: US (occurrence: US)
  Receive Date: 20181017
  Receipt Date: 20181017
  Transmission Date: 20190205
  Serious: No
  Sender: FDA-Public Use
  Company Number: US-CELGENEUS-USA-20181005161

PATIENT
  Sex: Female

DRUGS (1)
  1. OTEZLA [Suspect]
     Active Substance: APREMILAST
     Indication: PSORIASIS
     Dosage: 60 MILLIGRAM
     Route: 048
     Dates: start: 20180726, end: 20180915

REACTIONS (5)
  - Headache [Unknown]
  - Therapy non-responder [Unknown]
  - Abdominal pain upper [Unknown]
  - Psoriasis [Unknown]
  - Confusional state [Unknown]

NARRATIVE: CASE EVENT DATE: 2018
